FAERS Safety Report 5774533-X (Version None)
Quarter: 2008Q2

REPORT INFORMATION
  Report Type: 
  Country: None (occurrence: None)
  Receive Date: 20080616
  Receipt Date: 20080604
  Transmission Date: 20081010
  Serious: Yes (Other)
  Sender: FDA-Public Use
  Company Number: US-PFIZER INC-2008048755

PATIENT
  Weight: 57.727 kg

DRUGS (2)
  1. CHANTIX [Suspect]
     Indication: SMOKING CESSATION THERAPY
  2. CALCIUM WITH VITAMIN D [Concomitant]

REACTIONS (2)
  - BEDRIDDEN [None]
  - NAUSEA [None]
